FAERS Safety Report 6371346-5 (Version None)
Quarter: 2009Q3

REPORT INFORMATION
  Report Type: 
  Country: None (occurrence: None)
  Receive Date: 20090923
  Receipt Date: 20090909
  Transmission Date: 20100115
  Serious: Yes (Life-Threatening, Hospitalization)
  Sender: FDA-Public Use
  Company Number: US-PFIZER INC-2009268208

PATIENT
  Age: 72 Year
  Sex: Female

DRUGS (13)
  1. SERTRALINE HCL [Suspect]
     Dosage: 50 MG, 1X/DAY
  2. AMLODIPINE BESYLATE [Suspect]
     Dosage: 5 MG, 2X/DAY
  3. ALISKIREN [Suspect]
     Indication: HYPERTENSION
     Dosage: 150 MG, 1X/DAY
  4. SOTALOL [Suspect]
     Indication: SUPRAVENTRICULAR TACHYCARDIA
     Dosage: 80 MG, 2X/DAY
  5. CATAPRES [Suspect]
     Dosage: 0.3 MG, 2X/DAY
  6. METOPROLOL [Suspect]
     Dosage: 75 MG, 1X/DAY
  7. FUROSEMIDE [Suspect]
     Dosage: 20 MG, 1X/DAY
  8. METFORMIN [Suspect]
     Indication: DIABETES MELLITUS
     Dosage: 1000 MG, 2X/DAY
  9. WARFARIN [Suspect]
     Dosage: 2.5 MG, 1X/DAY
  10. POTASSIUM CHLORIDE [Suspect]
     Dosage: 20 MEQ, 2X/DAY
  11. ACETYLSALICYLIC ACID [Suspect]
     Dosage: UNK
  12. INSULIN [Suspect]
     Indication: DIABETES MELLITUS
     Dosage: UNK
  13. OLMESARTAN [Suspect]
     Dosage: 40 MG, 1X/DAY

REACTIONS (5)
  - CARDIAC ARREST [None]
  - CONFUSIONAL STATE [None]
  - DRUG INTERACTION [None]
  - ELECTROCARDIOGRAM QT PROLONGED [None]
  - TORSADE DE POINTES [None]
